FAERS Safety Report 17544510 (Version 6)
Quarter: 2022Q4

REPORT INFORMATION
  Report Type: Spontaneous
  Country: PT (occurrence: PT)
  Receive Date: 20200316
  Receipt Date: 20221203
  Transmission Date: 20230113
  Serious: Yes (Other)
  Sender: FDA-Public Use
  Company Number: NVSC2020PT072602

PATIENT
  Age: 20 Year
  Sex: Male

DRUGS (3)
  1. IBUPROFEN [Suspect]
     Active Substance: IBUPROFEN
     Indication: Product used for unknown indication
     Dosage: UNK
     Route: 065
  2. ASPIRIN [Suspect]
     Active Substance: ASPIRIN
     Indication: Product used for unknown indication
     Dosage: UNK
     Route: 065
  3. BUDESONIDE\FORMOTEROL FUMARATE [Concomitant]
     Active Substance: BUDESONIDE\FORMOTEROL FUMARATE
     Indication: Asthmatic crisis
     Dosage: UNK, PRN(STRENGTH OF- BUDESONIDE: 160 UG;FORMOTEROL: 4.5 UG
     Route: 065

REACTIONS (18)
  - Nasal obstruction [Recovering/Resolving]
  - Anosmia [Not Recovered/Not Resolved]
  - Taste disorder [Not Recovered/Not Resolved]
  - Nasal turbinate hypertrophy [Unknown]
  - Condition aggravated [Unknown]
  - Drug intolerance [Unknown]
  - Nasal polyps [Unknown]
  - Asthma [Unknown]
  - Anaphylactic reaction [Unknown]
  - Erythema [Unknown]
  - Periorbital oedema [Unknown]
  - Dyspnoea [Unknown]
  - Diarrhoea [Unknown]
  - Cough [Unknown]
  - Oedema peripheral [Unknown]
  - Lip oedema [Unknown]
  - Pruritus [Unknown]
  - NSAID exacerbated respiratory disease [Unknown]
